FAERS Safety Report 15560647 (Version 7)
Quarter: 2019Q1

REPORT INFORMATION
  Report Type: Spontaneous
  Country: US (occurrence: US)
  Receive Date: 20181029
  Receipt Date: 20190305
  Transmission Date: 20190417
  Serious: No
  Sender: FDA-Public Use
  Company Number: US-009507513-1810USA011124

PATIENT
  Age: 38 Year
  Sex: Female

DRUGS (5)
  1. REMERON SOLTAB [Suspect]
     Active Substance: MIRTAZAPINE
     Indication: ANXIETY
     Dosage: UNK
     Route: 048
     Dates: start: 2018
  2. REMERON SOLTAB [Suspect]
     Active Substance: MIRTAZAPINE
     Indication: DEPRESSION
     Dosage: UNK, QD
     Route: 048
     Dates: start: 2012
  3. REMERON SOLTAB [Suspect]
     Active Substance: MIRTAZAPINE
     Indication: ANXIETY
     Dosage: HALF TABLETS
     Route: 048
     Dates: start: 2018
  4. REMERON SOLTAB [Suspect]
     Active Substance: MIRTAZAPINE
     Indication: DEPRESSION
     Dosage: UNK UNK, QD
     Route: 048
     Dates: start: 2012
  5. REMERON SOLTAB [Suspect]
     Active Substance: MIRTAZAPINE
     Dosage: UNK
     Route: 048
     Dates: start: 2018

REACTIONS (12)
  - Discomfort [Unknown]
  - Product taste abnormal [Unknown]
  - Product dose omission [Unknown]
  - Product storage error [Unknown]
  - Abdominal discomfort [Unknown]
  - Chest pain [Unknown]
  - Myalgia [Not Recovered/Not Resolved]
  - Headache [Not Recovered/Not Resolved]
  - Anger [Unknown]
  - Wrong technique in product usage process [Unknown]
  - Feeling abnormal [Unknown]
  - Malaise [Unknown]

NARRATIVE: CASE EVENT DATE: 2018
